FAERS Safety Report 7033759-8 (Version None)
Quarter: 2010Q4

REPORT INFORMATION
  Report Type: 
  Country: None (occurrence: None)
  Receive Date: 20101007
  Receipt Date: 20100921
  Transmission Date: 20110411
  Serious: Yes (Other)
  Sender: FDA-Public Use
  Company Number: PHHY2010BR65798

PATIENT
  Age: 69 Year
  Sex: Male

DRUGS (11)
  1. METFORMIN [Suspect]
  2. VALSARTAN, AMLODIPINE [Suspect]
     Dosage: 320 MG + 5 MG
  3. ATENOLOL [Concomitant]
     Dosage: 50 MG
  4. AMLODIPINE [Concomitant]
     Dosage: 10 MG
  5. SIMVASTATIN [Concomitant]
     Dosage: 20 MG
  6. ASPIRIN [Concomitant]
     Dosage: 100 MG
  7. AMIODARONE [Concomitant]
     Dosage: 200 MG
  8. GLIBENCLAMIDE [Concomitant]
     Dosage: 5 MG
  9. LOSARTAN [Concomitant]
     Dosage: 100 MG
  10. METOPROLOL TARTRATE [Concomitant]
     Dosage: 100 MG
  11. FUROSEMIDE [Concomitant]
     Dosage: 40 MG

REACTIONS (14)
  - BLOOD CREATININE INCREASED [None]
  - BLOOD UREA INCREASED [None]
  - CORONARY ARTERY DISEASE [None]
  - CREATININE RENAL CLEARANCE DECREASED [None]
  - DIASTOLIC DYSFUNCTION [None]
  - DYSPNOEA [None]
  - HEART RATE DECREASED [None]
  - HYPERTENSION [None]
  - HYPOGLYCAEMIA [None]
  - LEFT VENTRICULAR HYPERTROPHY [None]
  - OEDEMA PERIPHERAL [None]
  - PROTEINURIA [None]
  - RENAL ATROPHY [None]
  - RENAL IMPAIRMENT [None]
